FAERS Safety Report 6963033-7 (Version None)
Quarter: 2010Q3

REPORT INFORMATION
  Report Type: 
  Country: None (occurrence: None)
  Receive Date: 20100830
  Receipt Date: 20100818
  Transmission Date: 20110219
  Serious: Yes (Death, Hospitalization)
  Sender: FDA-Public Use
  Company Number: LEO-2010-00777

PATIENT
  Age: 83 Year
  Sex: Female

DRUGS (3)
  1. INNOHEP [Suspect]
     Indication: PULMONARY EMBOLISM
     Dates: start: 20100607, end: 20100611
  2. ENALAPRIL (ENALAPRIL) (TABLETS) [Concomitant]
  3. IMPUGAN (FUROSEMIDE) (TABLETS) [Concomitant]

REACTIONS (3)
  - BLOOD PRESSURE DECREASED [None]
  - GASTROINTESTINAL HAEMORRHAGE [None]
  - TACHYCARDIA [None]
